FAERS Safety Report 18630384 (Version 5)
Quarter: 2021Q4

REPORT INFORMATION
  Report Type: Other
  Country: CA (occurrence: CA)
  Receive Date: 20201218
  Receipt Date: 20211105
  Transmission Date: 20220303
  Serious: Yes (Death, Hospitalization, Other)
  Sender: FDA-Public Use
  Company Number: CA-TOLMAR, INC.-20CA024351

PATIENT
  Age: 74 Year
  Sex: Male

DRUGS (5)
  1. ELIGARD [Suspect]
     Active Substance: LEUPROLIDE ACETATE
     Indication: Prostate cancer
     Dosage: 30 MG, Q 4 MONTH
     Route: 058
     Dates: start: 20200422
  2. ELIGARD [Suspect]
     Active Substance: LEUPROLIDE ACETATE
     Dosage: 30 MG, Q 4 MONTH
     Route: 058
     Dates: start: 20201203
  3. ELIGARD [Suspect]
     Active Substance: LEUPROLIDE ACETATE
     Dosage: 30 MG, Q 4 MONTH
     Route: 058
     Dates: start: 20210325
  4. ELIGARD [Suspect]
     Active Substance: LEUPROLIDE ACETATE
     Dosage: 30 MG, Q 4 MONTH
     Route: 058
     Dates: start: 20210716
  5. XTANDI [Suspect]
     Active Substance: ENZALUTAMIDE
     Indication: Product used for unknown indication
     Dosage: UNK

REACTIONS (13)
  - Death [Fatal]
  - Haemorrhage urinary tract [Unknown]
  - Haematuria [Not Recovered/Not Resolved]
  - Injection site mass [Unknown]
  - Decreased appetite [Unknown]
  - Weight decreased [Unknown]
  - Pruritus [Unknown]
  - Ageusia [Unknown]
  - Constipation [Unknown]
  - Hot flush [Unknown]
  - Injection site pain [Unknown]
  - Pollakiuria [Unknown]
  - Nocturia [Unknown]

NARRATIVE: CASE EVENT DATE: 20200422
